FAERS Safety Report 10029695 (Version 1)
Quarter: 2014Q1

REPORT INFORMATION
  Report Type: Spontaneous
  Country: US (occurrence: None)
  Receive Date: 20140321
  Receipt Date: 20140321
  Transmission Date: 20141002
  Serious: Yes (Other)
  Sender: FDA-Public Use
  Company Number: None

PATIENT
  Age: 24 Year
  Sex: Female
  Weight: 61.24 kg

DRUGS (1)
  1. CLONAZEPAM [Suspect]
     Indication: THERAPY CHANGE
     Dosage: 1 PILL THREE TIMES DAILY
     Dates: start: 20140218, end: 20140319

REACTIONS (6)
  - Confusional state [None]
  - Amnesia [None]
  - Panic attack [None]
  - Derealisation [None]
  - Anxiety [None]
  - Promiscuity [None]
